FAERS Safety Report 7991332-9 (Version None)
Quarter: 2011Q4

REPORT INFORMATION
  Report Type: 
  Country: None (occurrence: None)
  Receive Date: 20111215
  Receipt Date: 20111129
  Transmission Date: 20120403
  Serious: Yes (Other)
  Sender: FDA-Public Use
  Company Number: 2011AP002973

PATIENT
  Age: 21 Year
  Sex: Female

DRUGS (3)
  1. TOPIRAMATE [Suspect]
     Indication: MIGRAINE
     Dosage: 100 MG;BID;100 MG;AM;150 MG;HS; 250 MG;QD
     Dates: end: 20110206
  2. TOPIRAMATE [Suspect]
     Indication: MIGRAINE
     Dosage: 100 MG;BID;100 MG;AM;150 MG;HS; 250 MG;QD
     Dates: end: 20110101
  3. TOPIRAMATE [Suspect]
     Indication: MIGRAINE
     Dosage: 100 MG;BID;100 MG;AM;150 MG;HS; 250 MG;QD
     Dates: start: 20100501

REACTIONS (3)
  - ABNORMAL BEHAVIOUR [None]
  - DISSOCIATION [None]
  - SYNCOPE [None]
